FAERS Safety Report 5873260-8 (Version None)
Quarter: 2008Q3

REPORT INFORMATION
  Report Type: 
  Country: None (occurrence: None)
  Receive Date: 20080826
  Receipt Date: 20080814
  Transmission Date: 20090109
  Serious: Yes (Other)
  Sender: FDA-Public Use
  Company Number: AEDEU200800158

PATIENT
  Age: 67 Year
  Sex: Male
  Weight: 90 kg

DRUGS (15)
  1. PROLASTIN [Suspect]
     Indication: ALPHA-1 ANTI-TRYPSIN DEFICIENCY
     Dosage: 1 GM; IV
     Route: 042
     Dates: start: 19930101
  2. THEOPHYLLINE [Concomitant]
  3. CORTISONE [Concomitant]
  4. AMIODARONE HCL [Concomitant]
  5. HYDROCHLOROTHIAZOLDE W/TRIAMTERENE [Concomitant]
  6. MONTELUKAST SODIUM [Concomitant]
  7. METHYLPREDNISOLONE 16MG TAB [Concomitant]
  8. FLUTICASONE W/SALMETEROL [Concomitant]
  9. FENOTEROL [Concomitant]
  10. FENOTEROL W/IPARATROPIUM [Concomitant]
  11. THEOPHYLLINE [Concomitant]
  12. PULMICORT-100 [Concomitant]
  13. CIPRAMIL /00582603/ [Concomitant]
  14. LANSOPRAZOLE [Concomitant]
  15. TRIAMTERIN [Concomitant]

REACTIONS (4)
  - HYPOTENSION [None]
  - INFUSION RELATED REACTION [None]
  - RESPIRATORY FAILURE [None]
  - URTICARIA [None]
